FAERS Safety Report 5156665-2 (Version None)
Quarter: 2006Q4

REPORT INFORMATION
  Report Type: 
  Country: None (occurrence: None)
  Receive Date: 20061115
  Receipt Date: 20061102
  Transmission Date: 20070319
  Serious: Yes (Hospitalization, Other)
  Sender: FDA-Public Use
  Company Number: 2006134896

PATIENT
  Age: 79 Year
  Sex: Male

DRUGS (2)
  1. REVATIO [Suspect]
     Indication: PULMONARY HYPERTENSION
  2. NITROPRUSSIDE (NITROPRUSSIDE) [Concomitant]

REACTIONS (1)
  - HYPERTENSION [None]
